FAERS Safety Report 5826383-3 (Version None)
Quarter: 2008Q3

REPORT INFORMATION
  Report Type: 
  Country: None (occurrence: None)
  Receive Date: 20080724
  Receipt Date: 20080708
  Transmission Date: 20090109
  Serious: Yes (Hospitalization)
  Sender: FDA-Public Use
  Company Number: 8033939

PATIENT
  Age: 69 Year
  Sex: Female

DRUGS (3)
  1. XYZAL [Suspect]
     Indication: ALLERGIC COUGH
     Dosage: 1 DF /D PO
     Route: 048
     Dates: start: 20080421, end: 20080502
  2. POTASSIUM CHLORIDE [Concomitant]
  3. INDAPAMIDE [Concomitant]

REACTIONS (7)
  - BLISTER [None]
  - BRONCHIAL DISORDER [None]
  - BRONCHITIS [None]
  - CHEST PAIN [None]
  - ERYTHEMA [None]
  - MENTAL DISORDER [None]
  - OEDEMA [None]
